FAERS Safety Report 8255899-8 (Version None)
Quarter: 2012Q2

REPORT INFORMATION
  Report Type: 
  Country: None (occurrence: None)
  Receive Date: 20120403
  Receipt Date: 20120319
  Transmission Date: 20120825
  Serious: Yes (Hospitalization)
  Sender: FDA-Public Use
  Company Number: GB-ROCHE-1050213

PATIENT
  Age: 71 Year
  Sex: Male
  Weight: 79.7 kg

DRUGS (9)
  1. COTRIM [Concomitant]
     Indication: ANTIFUNGAL PROPHYLAXIS
     Route: 048
     Dates: start: 20090325
  2. VINCRISTINE [Suspect]
     Indication: NON-HODGKIN'S LYMPHOMA
     Route: 042
     Dates: start: 20090325, end: 20090325
  3. METOCLOPRAMIDE [Concomitant]
     Route: 048
     Dates: start: 20090325, end: 20090404
  4. NEULASTA [Suspect]
     Indication: NON-HODGKIN'S LYMPHOMA
     Route: 058
     Dates: start: 20090325, end: 20090402
  5. TRAMADOL HCL [Concomitant]
     Indication: ANALGESIC THERAPY
     Route: 048
     Dates: start: 20090325
  6. RITUXIMAB [Suspect]
     Indication: NON-HODGKIN'S LYMPHOMA
     Route: 042
     Dates: start: 20090325, end: 20090325
  7. GEMCITABINE [Suspect]
     Indication: NON-HODGKIN'S LYMPHOMA
     Route: 042
     Dates: start: 20090325, end: 20090401
  8. CYCLOPHOSPHAMIDE [Suspect]
     Indication: NON-HODGKIN'S LYMPHOMA
     Route: 042
     Dates: start: 20090325, end: 20090325
  9. PREDNISONE [Suspect]
     Indication: NON-HODGKIN'S LYMPHOMA
     Route: 048
     Dates: start: 20090325, end: 20090329

REACTIONS (6)
  - PLATELET COUNT DECREASED [None]
  - PYREXIA [None]
  - TROPONIN INCREASED [None]
  - CHEST PAIN [None]
  - HAEMOGLOBIN DECREASED [None]
  - INFECTION [None]
